FAERS Safety Report 20471124 (Version 1)
Quarter: 2022Q1

REPORT INFORMATION
  Report Type: Spontaneous
  Country: ZA (occurrence: ZA)
  Receive Date: 20220214
  Receipt Date: 20220214
  Transmission Date: 20220423
  Serious: Yes (Disabling, Other)
  Sender: FDA-Public Use
  Company Number: ZA-TEVA-2022-ZA-2007085

PATIENT
  Sex: Female

DRUGS (2)
  1. LINEZOLID [Suspect]
     Active Substance: LINEZOLID
     Indication: Tuberculosis
     Dosage: SCHEDULED FOR 2 MONTHS THERAPY
     Route: 048
  2. BEDAQUILINE [Concomitant]
     Active Substance: BEDAQUILINE
     Indication: Tuberculosis
     Route: 048

REACTIONS (3)
  - Neuropathy peripheral [Unknown]
  - Ankle fracture [Unknown]
  - Gait disturbance [Unknown]
